FAERS Safety Report 4963763-2 (Version None)
Quarter: 2006Q1

REPORT INFORMATION
  Report Type: 
  Country: None (occurrence: None)
  Receive Date: 20060330
  Receipt Date: 20060316
  Transmission Date: 20060701
  Serious: Yes (Death, Life-Threatening, Hospitalization, Disabling, Other)
  Sender: FDA-Public Use
  Company Number: 2006MP000051

PATIENT
  Age: 87 Year
  Sex: Female

DRUGS (8)
  1. AGGRASTAT [Suspect]
     Indication: ACUTE MYOCARDIAL INFARCTION
     Dosage: 0.4 UG/KG/MIN ; IV
     Route: 042
     Dates: start: 20051017, end: 20051017
  2. AGGRASTAT [Suspect]
     Indication: ACUTE MYOCARDIAL INFARCTION
     Dosage: 0.1 UG/KG/MIN ; IV
     Route: 042
     Dates: start: 20051017, end: 20051019
  3. ASPIRIN ^FEVER^ [Concomitant]
  4. CARVEDILOL [Concomitant]
  5. HEPARIN [Concomitant]
  6. MAGNESIUM GLUCONATE [Concomitant]
  7. POTASSIUM GLUCONATE TAB [Concomitant]
  8. RAMIPRIL [Concomitant]

REACTIONS (5)
  - ACUTE PULMONARY OEDEMA [None]
  - HAEMODYNAMIC INSTABILITY [None]
  - HYPERCAPNIA [None]
  - RESPIRATORY FAILURE [None]
  - SEPSIS [None]
